FAERS Safety Report 10029903 (Version 1)
Quarter: 2014Q1

REPORT INFORMATION
  Report Type: Spontaneous
  Country: US (occurrence: None)
  Receive Date: 20140306
  Receipt Date: 20140306
  Transmission Date: 20141002
  Serious: Yes (Hospitalization, Other)
  Sender: FDA-Public Use
  Company Number: 163-21880-12110591

PATIENT
  Age: 78 Year
  Sex: Female
  Weight: 127.92 kg

DRUGS (32)
  1. REVLIMID (LENALIDOMIDE) (CAPSULES) [Suspect]
     Indication: 5Q MINUS SYNDROME
     Dosage: 28 IN 28 D
     Route: 048
     Dates: start: 20120821, end: 20121001
  2. SODIUM BICARBONATE (SODIUM BICARBONATE) [Concomitant]
  3. ADVIL (IBUPROFEN) [Concomitant]
  4. MULTIVITAMINS (MULTIVITAMINS) [Concomitant]
  5. GLUCOSAMINE CHONDROTIN 500 COMPLEX (GLUCOSAMINE W/CHONDROITIN COMPLEX) [Concomitant]
  6. OCUVITE (OCUVITE) [Concomitant]
  7. ASPIRIN (ACETYLSALICYLIC ACID) [Concomitant]
  8. VITAMIN D3 (COLECALCIFEROL) [Concomitant]
  9. GLIMEPIRIDE (GLIMEPIRIDE) [Concomitant]
  10. CRANBERRY (VACCINIUM MACROCARPON JUICE) [Concomitant]
  11. GABAPENTIN (GABAPENTIN) [Concomitant]
  12. MEVACOR (LOVASTATIN) [Concomitant]
  13. PRBC (RED BLOOD CELLS, CONCENTRATED) [Concomitant]
  14. MOTRIN (IBUPROFEN) [Concomitant]
  15. METFORMIN (METFORMIN) [Concomitant]
  16. ZOLOFT (SERTRALINE HYDROCHLORIDE) [Concomitant]
  17. LOPRESSOR (METOPROLOL TARTRATE) [Concomitant]
  18. OCUVITE EXTRA (OCUVITE EXTRA) [Concomitant]
  19. CEPHALEXIN (CEFALEXIN) [Concomitant]
  20. ZOFRAN (ONDANSETRON HYDROCHLORIDE) [Concomitant]
  21. COLACE (DOCUSATE SODIUM) [Concomitant]
  22. SENOKOT (SENNA FRUIT) [Concomitant]
  23. MIRALAX (MACROGOL) [Concomitant]
  24. FLU VACCINE (INFLUENZA VACCINE) [Concomitant]
  25. MYCOSTATIN (NYSTATIN) [Concomitant]
  26. HEPARIN (HEPARIN) [Concomitant]
  27. DEXTROSE (GLUCOSE) [Concomitant]
  28. GLUCAGON (GLUCAGON) [Concomitant]
  29. NOVOLOG (INSULIN ASPART) [Concomitant]
  30. TYLENOL (PARACETAMOL) [Concomitant]
  31. LANTUS (INSULIN GLARGINE) [Concomitant]
  32. OXYCODONE (OXYCODONE) [Concomitant]

REACTIONS (3)
  - Gout [None]
  - Oedema peripheral [None]
  - Weight increased [None]
